FAERS Safety Report 10343507 (Version 2)
Quarter: 2014Q3

REPORT INFORMATION
  Report Type: Spontaneous
  Country: JP (occurrence: JP)
  Receive Date: 20140725
  Receipt Date: 20140725
  Transmission Date: 20150326
  Serious: Yes (Other)
  Sender: FDA-Public Use
  Company Number: JP-GILEAD-2014-0107954

PATIENT
  Age: 66 Year
  Sex: Male

DRUGS (4)
  1. ZEFIX [Suspect]
     Active Substance: LAMIVUDINE
     Indication: PRODUCT USED FOR UNKNOWN INDICATION
     Route: 048
  2. HEPSERA [Suspect]
     Active Substance: ADEFOVIR DIPIVOXIL
     Route: 048
  3. HEPSERA [Suspect]
     Active Substance: ADEFOVIR DIPIVOXIL
     Indication: PRODUCT USED FOR UNKNOWN INDICATION
     Dosage: UNK, QD
     Route: 065
  4. HEPSERA [Suspect]
     Active Substance: ADEFOVIR DIPIVOXIL
     Dosage: UNK, QOD
     Route: 065

REACTIONS (12)
  - Osteonecrosis [Unknown]
  - Pathological fracture [Unknown]
  - Renal disorder [Unknown]
  - Foot fracture [Unknown]
  - Renal impairment [Unknown]
  - Pain in extremity [Unknown]
  - Hypophosphataemia [Unknown]
  - Fanconi syndrome acquired [Unknown]
  - Osteomalacia [Unknown]
  - Renal tubular disorder [Unknown]
  - Blood creatinine increased [Unknown]
  - Arthralgia [Unknown]
